FAERS Safety Report 14870696 (Version 1)
Quarter: 2018Q2

REPORT INFORMATION
  Report Type: Spontaneous
  Country: US (occurrence: US)
  Receive Date: 20180509
  Receipt Date: 20180509
  Transmission Date: 20180711
  Serious: No
  Sender: FDA-Public Use
  Company Number: PHEH2018US017865

PATIENT
  Sex: Male

DRUGS (1)
  1. VOTRIENT [Suspect]
     Active Substance: PAZOPANIB HYDROCHLORIDE
     Indication: ILL-DEFINED DISORDER
     Dosage: 800 MG, QD
     Route: 048
     Dates: start: 20180328

REACTIONS (4)
  - Insomnia [Unknown]
  - Constipation [Unknown]
  - Nausea [Unknown]
  - Product use in unapproved indication [Unknown]
